FAERS Safety Report 12302502 (Version 2)
Quarter: 2017Q2

REPORT INFORMATION
  Report Type: Spontaneous
  Country: US (occurrence: US)
  Receive Date: 20160425
  Receipt Date: 20170424
  Transmission Date: 20170830
  Serious: No
  Sender: FDA-Public Use
  Company Number: US-SA-2015SA050635

PATIENT
  Age: 67 Year
  Sex: Male

DRUGS (3)
  1. ENOXAPARIN SODIUM - WINTHROP [Suspect]
     Active Substance: ENOXAPARIN SODIUM
     Indication: THROMBOSIS PROPHYLAXIS
     Route: 065
     Dates: start: 201503, end: 20150410
  2. CELEBREX [Concomitant]
     Active Substance: CELECOXIB
  3. ENOXAPARIN SODIUM - WINTHROP [Suspect]
     Active Substance: ENOXAPARIN SODIUM
     Indication: THROMBOSIS PROPHYLAXIS
     Route: 065
     Dates: start: 201503, end: 20150410

REACTIONS (5)
  - Fatigue [Unknown]
  - Feeling hot [Unknown]
  - Sluggishness [Unknown]
  - Unevaluable event [Unknown]
  - Adverse event [Unknown]

NARRATIVE: CASE EVENT DATE: 2015
